FAERS Safety Report 7323154-6 (Version None)
Quarter: 2011Q1

REPORT INFORMATION
  Report Type: 
  Country: None (occurrence: None)
  Receive Date: 20110216
  Receipt Date: 20110201
  Transmission Date: 20110831
  Serious: Yes (Hospitalization)
  Sender: FDA-Public Use
  Company Number: UTC-005058

PATIENT
  Age: 76 Year
  Sex: Female
  Weight: 50 kg

DRUGS (3)
  1. TYVASO [Suspect]
     Indication: PULMONARY ARTERIAL HYPERTENSION
     Dosage: 72 MCG (18 MCG,4 IN 1 D),INHALATION
     Route: 055
     Dates: start: 20110116, end: 20110122
  2. REVATIO [Concomitant]
  3. TRACLEER [Concomitant]

REACTIONS (6)
  - DIARRHOEA [None]
  - ADVERSE DRUG REACTION [None]
  - ASTHENIA [None]
  - SYNCOPE [None]
  - DIZZINESS [None]
  - DYSPNOEA [None]
